FAERS Safety Report 6663681-8 (Version None)
Quarter: 2010Q2

REPORT INFORMATION
  Report Type: 
  Country: None (occurrence: None)
  Receive Date: 20100401
  Receipt Date: 20100325
  Transmission Date: 20101027
  Serious: Yes (Death, Hospitalization)
  Sender: FDA-Public Use
  Company Number: JP-ASTRAZENECA-2010SE08523

PATIENT
  Age: 951 Month
  Sex: Female

DRUGS (6)
  1. ECARD COMBINATION [Suspect]
     Indication: HYPERTENSION
     Route: 048
     Dates: start: 20090929
  2. ASPIRIN [Concomitant]
     Indication: CEREBRAL INFARCTION
     Route: 050
     Dates: start: 20090801
  3. HOKUNALIN TAPE [Concomitant]
     Indication: BRONCHITIS CHRONIC
     Route: 062
     Dates: start: 20080930
  4. LAMISIL [Concomitant]
     Indication: TINEA PEDIS
     Route: 050
     Dates: start: 20091205
  5. TELEMINSOFT [Concomitant]
     Indication: CONSTIPATION
     Route: 054
     Dates: start: 20081015
  6. MUCOFILIN [Concomitant]
     Indication: BRONCHITIS CHRONIC
     Route: 055
     Dates: start: 20080710

REACTIONS (2)
  - CEREBRAL INFARCTION [None]
  - HYPONATRAEMIA [None]
